FAERS Safety Report 22209457 (Version 1)
Quarter: 2023Q2

REPORT INFORMATION
  Report Type: Spontaneous
  Country: BE (occurrence: None)
  Receive Date: 20230414
  Receipt Date: 20230414
  Transmission Date: 20230721
  Serious: Yes (Other)
  Sender: FDA-Public Use
  Company Number: 2023A081561

PATIENT
  Sex: Male

DRUGS (6)
  1. FULVESTRANT [Suspect]
     Active Substance: FULVESTRANT
     Indication: Disease progression
     Dosage: UNK (BONE)
     Dates: start: 202003, end: 202109
  2. FULVESTRANT [Suspect]
     Active Substance: FULVESTRANT
     Indication: Breast cancer
     Dosage: UNK (BONE)
     Dates: start: 202003, end: 202109
  3. TAMOXIFEN [Suspect]
     Active Substance: TAMOXIFEN
     Indication: Disease progression
     Dosage: UNK (BONE)
     Dates: start: 201601, end: 201801
  4. TAMOXIFEN [Suspect]
     Active Substance: TAMOXIFEN
     Indication: Breast cancer
     Dosage: UNK (BONE)
     Dates: start: 201601, end: 201801
  5. LETROZOLE [Suspect]
     Active Substance: LETROZOLE
     Indication: Breast cancer
     Dosage: UNK (BONE)
     Dates: start: 201801, end: 202003
  6. LETROZOLE [Suspect]
     Active Substance: LETROZOLE
     Indication: Disease progression
     Dosage: UNK (BONE)
     Dates: start: 201801, end: 202003

REACTIONS (1)
  - Gene mutation [Unknown]
